FAERS Safety Report 9259055 (Version 4)
Quarter: 2013Q3

REPORT INFORMATION
  Report Type: Report from Study
  Country: GB (occurrence: GB)
  Receive Date: 20130426
  Receipt Date: 20130726
  Transmission Date: 20140515
  Serious: Yes (Hospitalization)
  Sender: FDA-Public Use
  Company Number: GB-GENZYME-CAMP-1002871

PATIENT
  Age: 46 Year
  Sex: Female
  Weight: 56.6 kg

DRUGS (13)
  1. ALEMTUZUMAB [Suspect]
     Indication: MULTIPLE SCLEROSIS
     Dosage: 12 MG, QD
     Route: 042
     Dates: start: 20130416, end: 20130418
  2. ALEMTUZUMAB [Suspect]
     Dosage: 12 MG, QD
     Route: 042
     Dates: start: 20040419, end: 20040423
  3. ALEMTUZUMAB [Suspect]
     Dosage: 12 MG, QD
     Route: 042
     Dates: start: 20050415, end: 20050417
  4. METHYLPREDNISOLONE [Concomitant]
     Indication: MULTIPLE SCLEROSIS
     Dosage: 1 G, QD
     Route: 042
     Dates: start: 20040419, end: 20040421
  5. METHYLPREDNISOLONE [Concomitant]
     Indication: MULTIPLE SCLEROSIS
     Dosage: 1 G, QD
     Route: 042
     Dates: start: 20050415, end: 20050417
  6. METHYLPREDNISOLONE [Concomitant]
     Indication: MULTIPLE SCLEROSIS
     Dosage: 1 G, QD
     Route: 042
     Dates: start: 20130416, end: 20130418
  7. DYDROGESTERONE [Concomitant]
     Indication: MENORRHAGIA
     Dosage: UNK
     Dates: start: 200505
  8. ACYCLOVIR [Concomitant]
     Indication: PROPHYLAXIS
     Dosage: 200 MG, BID
     Route: 048
     Dates: start: 20130416, end: 20130517
  9. PARACETAMOL [Concomitant]
     Indication: PROPHYLAXIS
     Dosage: 1 G, QD
     Route: 048
     Dates: start: 20130416, end: 20130418
  10. PARACETAMOL [Concomitant]
     Indication: PRODUCT USED FOR UNKNOWN INDICATION
     Dosage: 1 G, PRN
     Route: 048
     Dates: start: 20130419, end: 20130428
  11. CETIRIZINE [Concomitant]
     Indication: PROPHYLAXIS
     Dosage: 10 MG, QD
     Route: 048
     Dates: start: 20130416, end: 20130418
  12. ZOPICLONE [Concomitant]
     Indication: SEDATION
     Dosage: 7.5 MG, QD
     Route: 048
     Dates: start: 20130416, end: 20130418
  13. IBUPROFEN [Concomitant]
     Indication: HEADACHE
     Dosage: 400 MG, TID
     Route: 048
     Dates: start: 20130419, end: 20130419

REACTIONS (1)
  - Sinus bradycardia [Recovered/Resolved]
